FAERS Safety Report 5016672-7 (Version None)
Quarter: 2006Q2

REPORT INFORMATION
  Report Type: 
  Country: None (occurrence: None)
  Receive Date: 20060602
  Receipt Date: 20060524
  Transmission Date: 20061013
  Serious: Yes (Other)
  Sender: FDA-Public Use
  Company Number: DE-JNJFOC-20060503237

PATIENT
  Sex: Female
  Weight: 120 kg

DRUGS (4)
  1. TOPAMAX [Suspect]
     Route: 048
  2. TOPAMAX [Suspect]
     Indication: DRUG THERAPY
     Route: 048
  3. FLUOXETINE HCL [Concomitant]
     Route: 065
  4. CLOZAPINE [Concomitant]
     Route: 065

REACTIONS (2)
  - ELECTROCARDIOGRAM QT PROLONGED [None]
  - OFF LABEL USE [None]
